FAERS Safety Report 13950732 (Version 3)
Quarter: 2018Q1

REPORT INFORMATION
  Report Type: Spontaneous
  Country: JP (occurrence: JP)
  Receive Date: 20170908
  Receipt Date: 20180117
  Transmission Date: 20180508
  Serious: Yes (Death, Other)
  Sender: FDA-Public Use
  Company Number: JP-OTSUKA-2017_019335

PATIENT

DRUGS (4)
  1. FLUDARABINE [Concomitant]
     Active Substance: FLUDARABINE PHOSPHATE
     Indication: STEM CELL TRANSPLANT
     Dosage: 30 MG/M2, DAILY DOSE
     Route: 065
  2. THYMOGLOBULIN [Concomitant]
     Active Substance: LAPINE T-LYMPHOCYTE IMMUNE GLOBULIN
     Indication: STEM CELL TRANSPLANT
     Dosage: 2 MG/KG, UNK
     Route: 065
  3. BUSULFEX [Suspect]
     Active Substance: BUSULFAN
     Indication: STEM CELL TRANSPLANT
     Dosage: 3.2 MG/KG, DAILY DOSE
     Route: 042
  4. CYTARABINE. [Concomitant]
     Active Substance: CYTARABINE
     Indication: STEM CELL TRANSPLANT
     Dosage: 2G/M2, BID
     Route: 065

REACTIONS (4)
  - Transplantation complication [Fatal]
  - Cytomegalovirus infection [Unknown]
  - Cystitis viral [Unknown]
  - Disease progression [Fatal]
